FAERS Safety Report 16653702 (Version 1)
Quarter: 2019Q3

REPORT INFORMATION
  Report Type: Spontaneous
  Country: US (occurrence: US)
  Receive Date: 20190731
  Receipt Date: 20190731
  Transmission Date: 20191004
  Serious: Yes (Other)
  Sender: FDA-Public Use
  Company Number: US-ASTRAZENECA-2019SF06399

PATIENT
  Sex: Female

DRUGS (2)
  1. NICORETTE [Suspect]
     Active Substance: NICOTINE
     Indication: SMOKING CESSATION THERAPY
     Dosage: 15MG CARTRIDGE INHALE IT GOES INTO A HOLDER EVERY 20-30 MINUTES FOR FEW MINUTES
     Route: 055
  2. QUETIAPINE. [Suspect]
     Active Substance: QUETIAPINE
     Indication: INSOMNIA
     Route: 048

REACTIONS (5)
  - Chemical poisoning [Unknown]
  - Skin cancer [Unknown]
  - Cough [Unknown]
  - Visual impairment [Unknown]
  - Dyskinesia [Unknown]
